FAERS Safety Report 5522593-3 (Version None)
Quarter: 2007Q4

REPORT INFORMATION
  Report Type: 
  Country: None (occurrence: None)
  Receive Date: 20071120
  Receipt Date: 20071112
  Transmission Date: 20080405
  Serious: Yes (Hospitalization)
  Sender: FDA-Public Use
  Company Number: IT-PFIZER INC-2007095131

PATIENT
  Sex: Female

DRUGS (5)
  1. ZYVOXID TABLET [Suspect]
     Indication: ARTHRODESIS
     Route: 048
     Dates: start: 20071002, end: 20071104
  2. TARGOCID [Suspect]
     Indication: ARTHRODESIS
     Route: 030
     Dates: start: 20071002, end: 20071104
  3. LIMPIDEX [Concomitant]
     Route: 048
  4. CLEXANE [Concomitant]
     Dosage: TEXT:4000 UI
     Route: 058
  5. BETOTAL 12 FORTE [Concomitant]
     Route: 048

REACTIONS (5)
  - ANAEMIA [None]
  - HYPOPROTEINAEMIA [None]
  - LEUKOPENIA [None]
  - PERICARDIAL EFFUSION [None]
  - PLEURAL EFFUSION [None]
